FAERS Safety Report 4713426-3 (Version None)
Quarter: 2005Q3

REPORT INFORMATION
  Report Type: 
  Country: None (occurrence: None)
  Receive Date: 20050711
  Receipt Date: 20050627
  Transmission Date: 20060218
  Serious: Yes (Other)
  Sender: FDA-Public Use
  Company Number: 2005-129895-NL

PATIENT
  Sex: Female

DRUGS (1)
  1. NUVARING [Suspect]
     Dates: start: 20050603, end: 20050613

REACTIONS (12)
  - ABDOMINAL DISTENSION [None]
  - DIZZINESS [None]
  - DYSPNOEA [None]
  - FATIGUE [None]
  - HEADACHE [None]
  - HOT FLUSH [None]
  - HYPOTENSION [None]
  - IMPAIRED WORK ABILITY [None]
  - MALAISE [None]
  - MOOD ALTERED [None]
  - MUSCLE SPASMS [None]
  - NAUSEA [None]
